FAERS Safety Report 15195811 (Version 1)
Quarter: 2018Q3

REPORT INFORMATION
  Report Type: Spontaneous
  Country: US (occurrence: US)
  Receive Date: 20180725
  Receipt Date: 20180725
  Transmission Date: 20181010
  Serious: No
  Sender: FDA-Public Use
  Company Number: US-PFIZER INC-2018297493

PATIENT
  Age: 59 Year
  Sex: Female

DRUGS (5)
  1. GABAPENTIN. [Suspect]
     Active Substance: GABAPENTIN
     Indication: NEUROPATHY PERIPHERAL
     Dosage: UNK, THRICE DAILY
     Dates: start: 201608, end: 2016
  2. REVLIMID [Concomitant]
     Active Substance: LENALIDOMIDE
     Indication: CHEMOTHERAPY
     Dosage: 5 MG, ALTERNATE DAY
     Route: 048
     Dates: start: 2011
  3. ZOMETA [Concomitant]
     Active Substance: ZOLEDRONIC ACID
     Indication: CHEMOTHERAPY
     Dosage: UNK, EVERY 3 MONTHS
  4. GABAPENTIN. [Suspect]
     Active Substance: GABAPENTIN
     Dosage: UNK, TWICE DAILY
     Dates: start: 2016, end: 2016
  5. VELCADE [Concomitant]
     Active Substance: BORTEZOMIB
     Indication: CHEMOTHERAPY
     Dosage: UNK

REACTIONS (4)
  - Diarrhoea [Recovering/Resolving]
  - Fatigue [Unknown]
  - Product use in unapproved indication [Unknown]
  - Condition aggravated [Recovering/Resolving]

NARRATIVE: CASE EVENT DATE: 2016
